FAERS Safety Report 12208366 (Version 1)
Quarter: 2016Q1

REPORT INFORMATION
  Report Type: Spontaneous
  Country: GB (occurrence: GB)
  Receive Date: 20160324
  Receipt Date: 20160324
  Transmission Date: 20160526
  Serious: Yes (Other)
  Sender: FDA-Public Use
  Company Number: GB-ACTAVIS-2016-05639

PATIENT
  Age: 60 Year
  Sex: Female
  Weight: 53.7 kg

DRUGS (2)
  1. CANDESARTAN [Concomitant]
     Active Substance: CANDESARTAN
     Indication: PRODUCT USED FOR UNKNOWN INDICATION
     Dosage: UNK
     Route: 065
  2. INDIPAM XL [Suspect]
     Active Substance: INDAPAMIDE
     Indication: HYPERTENSION
     Dosage: 1.5 MG, UNKNOWN
     Route: 048
     Dates: start: 20150416, end: 20160101

REACTIONS (6)
  - Pruritus [Recovered/Resolved]
  - Seasonal allergy [Recovering/Resolving]
  - Fatigue [Recovering/Resolving]
  - Urticaria [Recovered/Resolved]
  - Headache [Recovered/Resolved]
  - Periorbital oedema [Not Recovered/Not Resolved]

NARRATIVE: CASE EVENT DATE: 201505
